FAERS Safety Report 17712000 (Version 5)
Quarter: 2023Q4

REPORT INFORMATION
  Report Type: Spontaneous
  Country: SK (occurrence: SK)
  Receive Date: 20200427
  Receipt Date: 20231215
  Transmission Date: 20240109
  Serious: Yes (Other)
  Sender: FDA-Public Use
  Company Number: None

PATIENT
  Age: 44 Year
  Sex: Female

DRUGS (53)
  1. CARBAMAZEPINE [Suspect]
     Active Substance: CARBAMAZEPINE
     Indication: Affective disorder
     Dosage: UNK
     Route: 065
  2. CARBAMAZEPINE [Suspect]
     Active Substance: CARBAMAZEPINE
     Indication: Schizophrenia
  3. ARIPIPRAZOLE [Suspect]
     Active Substance: ARIPIPRAZOLE
     Indication: Psychotherapy
     Dosage: UNK
     Route: 065
  4. ARIPIPRAZOLE [Suspect]
     Active Substance: ARIPIPRAZOLE
     Indication: Schizophrenia
  5. CITALOPRAM [Suspect]
     Active Substance: CITALOPRAM HYDROBROMIDE
     Indication: Antidepressant therapy
     Dosage: UNK
     Route: 065
  6. CITALOPRAM [Suspect]
     Active Substance: CITALOPRAM HYDROBROMIDE
     Indication: Schizophrenia
  7. RISPERIDONE [Suspect]
     Active Substance: RISPERIDONE
     Indication: Personality disorder
     Dosage: SMALL DOSE
     Route: 065
  8. RISPERIDONE [Suspect]
     Active Substance: RISPERIDONE
     Indication: Schizophrenia
  9. MIRTAZAPINE [Suspect]
     Active Substance: MIRTAZAPINE
     Indication: Antidepressant therapy
     Dosage: UNK
     Route: 065
  10. MIRTAZAPINE [Suspect]
     Active Substance: MIRTAZAPINE
     Indication: Schizophrenia
  11. QUETIAPINE FUMARATE [Suspect]
     Active Substance: QUETIAPINE FUMARATE
     Indication: Schizophrenia
     Dosage: UNK
     Route: 065
  12. QUETIAPINE FUMARATE [Suspect]
     Active Substance: QUETIAPINE FUMARATE
     Indication: Psychotherapy
  13. DULOXETINE HYDROCHLORIDE [Suspect]
     Active Substance: DULOXETINE HYDROCHLORIDE
     Indication: Antidepressant therapy
     Dosage: UNK
     Route: 065
  14. DULOXETINE HYDROCHLORIDE [Suspect]
     Active Substance: DULOXETINE HYDROCHLORIDE
     Indication: Schizophrenia
  15. VALPROIC ACID [Suspect]
     Active Substance: VALPROIC ACID
     Indication: Affective disorder
     Dosage: UNK
     Route: 065
  16. VALPROIC ACID [Suspect]
     Active Substance: VALPROIC ACID
     Indication: Schizophrenia
  17. AGOMELATINE [Suspect]
     Active Substance: AGOMELATINE
     Indication: Antidepressant therapy
     Dosage: UNK
     Route: 065
  18. AGOMELATINE [Suspect]
     Active Substance: AGOMELATINE
     Indication: Schizophrenia
  19. TIAPRIDE HYDROCHLORIDE [Suspect]
     Active Substance: TIAPRIDE HYDROCHLORIDE
     Indication: Schizophrenia
     Dosage: UNK
     Route: 065
  20. TIAPRIDE HYDROCHLORIDE [Suspect]
     Active Substance: TIAPRIDE HYDROCHLORIDE
     Indication: Product used for unknown indication
  21. FLUPENTIXOL [Suspect]
     Active Substance: FLUPENTIXOL
     Indication: Psychotherapy
     Dosage: UNK
     Route: 065
  22. FLUPENTIXOL [Suspect]
     Active Substance: FLUPENTIXOL
     Indication: Schizophrenia
  23. AMISULPRIDE [Suspect]
     Active Substance: AMISULPRIDE
     Indication: Schizophrenia
     Dosage: UNK
     Route: 065
  24. LITHIUM [Suspect]
     Active Substance: LITHIUM
     Indication: Affective disorder
     Dosage: UNK
     Route: 065
  25. LITHIUM [Suspect]
     Active Substance: LITHIUM
     Indication: Schizophrenia
  26. VENLAFAXINE HYDROCHLORIDE [Suspect]
     Active Substance: VENLAFAXINE HYDROCHLORIDE
     Indication: Antidepressant therapy
     Dosage: UNK
     Route: 065
  27. VENLAFAXINE HYDROCHLORIDE [Suspect]
     Active Substance: VENLAFAXINE HYDROCHLORIDE
     Indication: Schizophrenia
  28. CLONAZEPAM [Suspect]
     Active Substance: CLONAZEPAM
     Indication: Anxiolytic therapy
     Dosage: UNK
     Route: 065
  29. CLONAZEPAM [Suspect]
     Active Substance: CLONAZEPAM
     Indication: Anxiety
  30. CLONAZEPAM [Suspect]
     Active Substance: CLONAZEPAM
     Indication: Schizophrenia
  31. ZIPRASIDONE [Suspect]
     Active Substance: ZIPRASIDONE
     Indication: Psychotherapy
     Dosage: UNK
     Route: 065
  32. ZIPRASIDONE [Suspect]
     Active Substance: ZIPRASIDONE
     Indication: Schizophrenia
  33. ALPRAZOLAM [Suspect]
     Active Substance: ALPRAZOLAM
     Indication: Anxiolytic therapy
     Dosage: UNK
     Route: 065
  34. ALPRAZOLAM [Suspect]
     Active Substance: ALPRAZOLAM
     Indication: Schizophrenia
  35. MIANSERIN HYDROCHLORIDE [Suspect]
     Active Substance: MIANSERIN HYDROCHLORIDE
     Indication: Antidepressant therapy
     Dosage: UNK
     Route: 065
  36. MIANSERIN HYDROCHLORIDE [Suspect]
     Active Substance: MIANSERIN HYDROCHLORIDE
     Indication: Schizophrenia
  37. BUPROPION [Suspect]
     Active Substance: BUPROPION
     Indication: Antidepressant therapy
     Dosage: UNK
     Route: 065
  38. BUPROPION [Suspect]
     Active Substance: BUPROPION
     Indication: Schizophrenia
  39. TRAZODONE HYDROCHLORIDE [Suspect]
     Active Substance: TRAZODONE HYDROCHLORIDE
     Indication: Antidepressant therapy
     Dosage: UNK
     Route: 065
  40. TRAZODONE HYDROCHLORIDE [Suspect]
     Active Substance: TRAZODONE HYDROCHLORIDE
     Indication: Schizophrenia
  41. BROMAZEPAM [Suspect]
     Active Substance: BROMAZEPAM
     Indication: Anxiolytic therapy
     Dosage: UNK
     Route: 065
  42. BROMAZEPAM [Suspect]
     Active Substance: BROMAZEPAM
     Indication: Schizophrenia
  43. FLUNITRAZEPAM [Suspect]
     Active Substance: FLUNITRAZEPAM
     Indication: Anxiolytic therapy
     Dosage: UNK
     Route: 065
  44. FLUNITRAZEPAM [Suspect]
     Active Substance: FLUNITRAZEPAM
     Indication: Schizophrenia
  45. LEVOMEPROMAZINE [Suspect]
     Active Substance: LEVOMEPROMAZINE
     Indication: Psychotherapy
     Dosage: UNK
     Route: 065
  46. LEVOMEPROMAZINE [Suspect]
     Active Substance: LEVOMEPROMAZINE
     Indication: Schizophrenia
  47. CHLORPROTHIXENE [Suspect]
     Active Substance: CHLORPROTHIXENE
     Indication: Psychotherapy
     Dosage: UNK
     Route: 065
  48. CHLORPROTHIXENE [Suspect]
     Active Substance: CHLORPROTHIXENE
     Indication: Schizophrenia
  49. BUSPIRONE HYDROCHLORIDE [Suspect]
     Active Substance: BUSPIRONE HYDROCHLORIDE
     Indication: Schizophrenia
     Dosage: UNK
     Route: 065
  50. SERTRALINE HYDROCHLORIDE [Suspect]
     Active Substance: SERTRALINE HYDROCHLORIDE
     Indication: Antidepressant therapy
     Dosage: UNK
     Route: 065
  51. SERTRALINE HYDROCHLORIDE [Suspect]
     Active Substance: SERTRALINE HYDROCHLORIDE
     Indication: Schizophrenia
  52. AMITRIPTYLINE HYDROCHLORIDE [Suspect]
     Active Substance: AMITRIPTYLINE HYDROCHLORIDE
     Indication: Antidepressant therapy
     Dosage: UNK
     Route: 065
  53. AMITRIPTYLINE HYDROCHLORIDE [Suspect]
     Active Substance: AMITRIPTYLINE HYDROCHLORIDE
     Indication: Schizophrenia

REACTIONS (7)
  - Type 2 diabetes mellitus [Not Recovered/Not Resolved]
  - Weight increased [Recovering/Resolving]
  - Extrapyramidal disorder [Recovering/Resolving]
  - Fatigue [Recovering/Resolving]
  - Vertigo [Recovering/Resolving]
  - Drug ineffective [Unknown]
  - Off label use [Unknown]
